FAERS Safety Report 11500539 (Version 1)
Quarter: 2015Q3

REPORT INFORMATION
  Report Type: Spontaneous
  Country: US (occurrence: US)
  Receive Date: 20150914
  Receipt Date: 20150914
  Transmission Date: 20151125
  Serious: No
  Sender: FDA-Public Use
  Company Number: US-PFIZER INC-2015305643

PATIENT
  Age: 81 Year
  Sex: Female

DRUGS (4)
  1. ZANAFLEX [Suspect]
     Active Substance: TIZANIDINE HYDROCHLORIDE
     Dosage: UNK
  2. NEURONTIN [Suspect]
     Active Substance: GABAPENTIN
     Dosage: UNK
  3. COREG [Suspect]
     Active Substance: CARVEDILOL
     Dosage: UNK
  4. TOPAMAX [Suspect]
     Active Substance: TOPIRAMATE
     Dosage: UNK

REACTIONS (1)
  - Drug hypersensitivity [Unknown]
